FAERS Safety Report 15890633 (Version 1)
Quarter: 2019Q1

REPORT INFORMATION
  Report Type: Other
  Country: CN (occurrence: CN)
  Receive Date: 20190130
  Receipt Date: 20190130
  Transmission Date: 20190417
  Serious: Yes (Life-Threatening, Hospitalization, Disabling)
  Sender: FDA-Public Use
  Company Number: CN-JIANGSU HENGRUI MEDICINE CO., LTD.-2061933

PATIENT
  Age: 69 Year
  Sex: Male

DRUGS (2)
  1. DOCETAXEL INJECTION USP, 20 MG/0.5 ML, SINGLE-DOSE VIAL, TWO-VIAL FORM [Suspect]
     Active Substance: DOCETAXEL
     Indication: LUNG NEOPLASM MALIGNANT
     Route: 041
     Dates: start: 20171111, end: 20171111
  2. CISPLATIN FOR INJECTION (FREEZE-DRIED) [Suspect]
     Active Substance: CISPLATIN
     Route: 041
     Dates: start: 20171111, end: 20171113

REACTIONS (5)
  - Shock [Recovering/Resolving]
  - Chest discomfort [None]
  - Pyrexia [None]
  - Palpitations [None]
  - Bone marrow failure [Recovering/Resolving]

NARRATIVE: CASE EVENT DATE: 20171120
